FAERS Safety Report 7994123-8 (Version None)
Quarter: 2011Q4

REPORT INFORMATION
  Report Type: 
  Country: None (occurrence: None)
  Receive Date: 20111220
  Receipt Date: 20111208
  Transmission Date: 20120403
  Serious: Yes (Other)
  Sender: FDA-Public Use
  Company Number: CA-JNJFOC-20111006733

PATIENT
  Sex: Female
  Weight: 94.6 kg

DRUGS (9)
  1. GABAPENTIN [Concomitant]
     Route: 065
  2. RISPERDAL [Concomitant]
     Route: 065
  3. PAROXETINE HCL [Concomitant]
     Route: 065
  4. REMICADE [Suspect]
     Dosage: 11 INFUSIONS TO DATE
     Route: 065
     Dates: start: 20100501
  5. IMOVANE [Concomitant]
     Route: 065
  6. REMICADE [Suspect]
     Indication: CROHN'S DISEASE
     Dosage: 11 INFUSIONS TO DATE
     Route: 065
     Dates: start: 20100428
  7. IMURAN [Concomitant]
     Route: 065
  8. CLONAZEPAM [Concomitant]
     Route: 065
  9. SALAGEN [Concomitant]
     Route: 065

REACTIONS (2)
  - COLOSTOMY CLOSURE [None]
  - POST PROCEDURAL INFECTION [None]
